FAERS Safety Report 18657901 (Version 1)
Quarter: 2020Q4

REPORT INFORMATION
  Report Type: Report from Study
  Country: None (occurrence: JP)
  Receive Date: 20201224
  Receipt Date: 20201224
  Transmission Date: 20210114
  Serious: Yes (Disabling, Other)
  Sender: FDA-Public Use
  Company Number: JP-ABBVIE-20P-087-3272356-00

PATIENT
  Age: 78 Year
  Sex: Male
  Weight: 54 kg

DRUGS (1)
  1. LEUPLIN [Suspect]
     Active Substance: LEUPROLIDE ACETATE
     Indication: BULBOSPINAL MUSCULAR ATROPHY CONGENITAL
     Route: 058
     Dates: start: 20171004

REACTIONS (8)
  - Glucose tolerance impaired [Not Recovered/Not Resolved]
  - Condition aggravated [Recovered/Resolved]
  - Myalgia [Recovering/Resolving]
  - Back pain [Recovering/Resolving]
  - Condition aggravated [Recovered/Resolved]
  - Bronchitis [Recovered/Resolved]
  - Sputum increased [Recovering/Resolving]
  - Contusion [Recovered/Resolved]

NARRATIVE: CASE EVENT DATE: 20190910
